FAERS Safety Report 7402968-8 (Version None)
Quarter: 2011Q2

REPORT INFORMATION
  Report Type: 
  Country: None (occurrence: None)
  Receive Date: 20110408
  Receipt Date: 20110114
  Transmission Date: 20111010
  Serious: No
  Sender: FDA-Public Use
  Company Number: US-NOVEN-11US001586

PATIENT
  Sex: Female

DRUGS (18)
  1. PLAVIX [Concomitant]
     Indication: PRODUCT USED FOR UNKNOWN INDICATION
  2. FENTANYL [Suspect]
     Indication: PRODUCT USED FOR UNKNOWN INDICATION
     Dosage: 25 MCG /HR
     Route: 062
  3. BIOTIN [Concomitant]
     Indication: ALOPECIA
  4. FENTANYL [Suspect]
     Dosage: 25 MCG/HR
     Route: 062
  5. SIMVASTATIN [Concomitant]
     Indication: PRODUCT USED FOR UNKNOWN INDICATION
  6. TRAMADOL HCL [Concomitant]
     Indication: PRODUCT USED FOR UNKNOWN INDICATION
  7. LACTULOSE [Concomitant]
     Indication: CONSTIPATION
  8. NEURONTIN [Concomitant]
     Indication: PAIN
  9. NITROGLYCERIN [Concomitant]
     Indication: PRODUCT USED FOR UNKNOWN INDICATION
  10. AMITIZA [Concomitant]
     Indication: CONSTIPATION
  11. LAXATIVE [Concomitant]
     Indication: CONSTIPATION
  12. METOPROLOL TARTRATE [Concomitant]
     Indication: PRODUCT USED FOR UNKNOWN INDICATION
  13. ZANTAC [Concomitant]
     Indication: PRODUCT USED FOR UNKNOWN INDICATION
  14. METAMUCIL                          /00029101/ [Concomitant]
     Indication: CONSTIPATION
  15. STOOL SOFTENER [Concomitant]
     Indication: CONSTIPATION
  16. ASPIRIN [Concomitant]
     Indication: PRODUCT USED FOR UNKNOWN INDICATION
     Dosage: 81 MG, UNK
     Route: 048
  17. LANTUS [Concomitant]
     Indication: TYPE 1 DIABETES MELLITUS
  18. MIRALAX [Concomitant]
     Indication: CONSTIPATION

REACTIONS (2)
  - DRUG ADMINISTRATION ERROR [None]
  - PRODUCT QUALITY ISSUE [None]
